FAERS Safety Report 8131565-4 (Version None)
Quarter: 2012Q1

REPORT INFORMATION
  Report Type: 
  Country: None (occurrence: None)
  Receive Date: 20120213
  Receipt Date: 20120206
  Transmission Date: 20120608
  Serious: Yes (Death)
  Sender: FDA-Public Use
  Company Number: JP-JNJFOC-20120205379

PATIENT
  Sex: Male
  Weight: 47 kg

DRUGS (12)
  1. KONSUBEN [Concomitant]
     Indication: CONSTIPATION
     Route: 048
     Dates: end: 20120106
  2. INVEGA [Suspect]
     Indication: SCHIZOPHRENIA, PARANOID TYPE
     Route: 048
     Dates: start: 20110622, end: 20110705
  3. VALPROATE SODIUM [Concomitant]
     Indication: MANIA
     Route: 048
     Dates: start: 20110914, end: 20120110
  4. INVEGA [Suspect]
     Route: 048
     Dates: start: 20110727
  5. BLONANSERIN [Concomitant]
     Indication: SCHIZOPHRENIA, PARANOID TYPE
     Route: 048
     Dates: start: 20110608, end: 20120110
  6. INVEGA [Suspect]
     Route: 048
     Dates: start: 20110706, end: 20110726
  7. RISPERDAL [Suspect]
     Indication: SCHIZOPHRENIA, PARANOID TYPE
     Route: 048
     Dates: start: 20110921, end: 20120108
  8. RISPERDAL [Suspect]
     Route: 048
     Dates: start: 20110914, end: 20110920
  9. SHINLUCK [Concomitant]
     Indication: CONSTIPATION
     Route: 048
     Dates: end: 20120108
  10. SENNOSIDE [Concomitant]
     Indication: CONSTIPATION
     Route: 048
     Dates: start: 20111221, end: 20120108
  11. INVEGA [Suspect]
     Route: 048
     Dates: start: 20110608, end: 20110621
  12. VALPROATE SODIUM [Concomitant]
     Route: 048
     Dates: end: 20110913

REACTIONS (2)
  - URINARY TRACT INFECTION [None]
  - PNEUMONIA [None]
